FAERS Safety Report 6812295-5 (Version None)
Quarter: 2010Q2

REPORT INFORMATION
  Report Type: 
  Country: None (occurrence: None)
  Receive Date: 20100628
  Receipt Date: 20100617
  Transmission Date: 20101027
  Serious: Yes (Other)
  Sender: FDA-Public Use
  Company Number: 014172

PATIENT
  Age: 31 Year
  Sex: Female

DRUGS (3)
  1. LEVETIRACETAM [Suspect]
     Indication: CONVULSION
  2. CLOBAZAM (CLOBAZAM) [Suspect]
     Indication: CONVULSION
  3. FOLIC ACID [Concomitant]

REACTIONS (3)
  - BLADDER DISORDER [None]
  - DRUG EXPOSURE DURING PREGNANCY [None]
  - EXTRANODAL MARGINAL ZONE B-CELL LYMPHOMA (MALT TYPE) [None]
